FAERS Safety Report 8610261-0 (Version None)
Quarter: 2012Q3

REPORT INFORMATION
  Report Type: 
  Country: None (occurrence: None)
  Receive Date: 20120810
  Receipt Date: 20120810
  Transmission Date: 20120928
  Serious: Yes (Disabling, Other)
  Sender: FDA-Public Use
  Company Number: None

PATIENT
  Age: 80 Year
  Sex: Male
  Weight: 88.4514 kg

DRUGS (1)
  1. CIPROFLOXACIN [Suspect]
     Indication: PROPHYLAXIS URINARY TRACT INFECTION
     Dosage: 500MG 2 X DAILY
     Dates: start: 20120720, end: 20120731

REACTIONS (2)
  - GAIT DISTURBANCE [None]
  - TENDONITIS [None]
